FAERS Safety Report 8182307-8 (Version None)
Quarter: 2012Q1

REPORT INFORMATION
  Report Type: 
  Country: None (occurrence: None)
  Receive Date: 20120302
  Receipt Date: 20120228
  Transmission Date: 20120608
  Serious: Yes (Death, Hospitalization, Other)
  Sender: FDA-Public Use
  Company Number: PHHY2010BR03465

PATIENT
  Sex: Male

DRUGS (2)
  1. DIOVAN [Suspect]
     Indication: HYPERTENSION
     Dosage: 80 MG, DAILY
  2. DRUG USED IN DIABETES [Concomitant]

REACTIONS (10)
  - DYSSTASIA [None]
  - SOMNOLENCE [None]
  - PULMONARY EMBOLISM [None]
  - THROMBOSIS [None]
  - CARDIAC ARREST [None]
  - BLADDER CANCER [None]
  - RENAL DISORDER [None]
  - PROSTATE CANCER [None]
  - PROSTATIC PAIN [None]
  - BLOOD URINE [None]
